FAERS Safety Report 8992810 (Version 1)
Quarter: 2013Q1

REPORT INFORMATION
  Report Type: Spontaneous
  Country: US (occurrence: US)
  Receive Date: 20130102
  Receipt Date: 20130102
  Transmission Date: 20140127
  Serious: No
  Sender: FDA-Public Use
  Company Number: US-009507513-1212USA010844

PATIENT
  Sex: Female

DRUGS (1)
  1. CLARINEX-D 12 HOUR [Suspect]
     Dosage: UNK
     Route: 048
     Dates: start: 201112, end: 201112

REACTIONS (2)
  - Malaise [Unknown]
  - Drug ineffective [Unknown]
